FAERS Safety Report 4390999-4 (Version None)
Quarter: 2004Q2

REPORT INFORMATION
  Report Type: 
  Country: None (occurrence: None)
  Receive Date: 20040625
  Receipt Date: 20040617
  Transmission Date: 20050107
  Serious: Yes (Other)
  Sender: FDA-Public Use
  Company Number: 200410019BBE

PATIENT
  Age: 3 Year
  Sex: Female

DRUGS (3)
  1. BAYRAB [Suspect]
     Indication: RABIES
     Dosage: 260 IU, ONCE, INTRAMUSCULAR
     Route: 030
     Dates: start: 20011022
  2. RABAVERT [Suspect]
     Indication: RABIES
     Dates: start: 20011022, end: 20011119
  3. MULTIVITAMIN [Concomitant]

REACTIONS (4)
  - CONVULSION [None]
  - DEVELOPMENTAL DELAY [None]
  - LEARNING DISORDER [None]
  - RABIES [None]
